FAERS Safety Report 5862556-1 (Version None)
Quarter: 2008Q3

REPORT INFORMATION
  Report Type: 
  Country: None (occurrence: None)
  Receive Date: 20080828
  Receipt Date: 20080818
  Transmission Date: 20090109
  Serious: Yes (Hospitalization)
  Sender: FDA-Public Use
  Company Number: NL-JNJFOC-20080803881

PATIENT
  Sex: Male
  Weight: 54 kg

DRUGS (14)
  1. INFLIXIMAB, RECOMBINANT [Suspect]
     Indication: RHEUMATOID ARTHRITIS
     Route: 042
  2. METHOTREXATE [Suspect]
     Indication: RHEUMATOID ARTHRITIS
  3. FOLIC ACID [Concomitant]
  4. ASCAL [Concomitant]
  5. FOSAMAX [Concomitant]
  6. CALCIUM WITH VITAMIN D [Concomitant]
  7. METFORMIN HCL [Concomitant]
     Indication: DIABETES MELLITUS
  8. OMEPRAZOLE [Concomitant]
     Indication: GASTROINTESTINAL DISORDER THERAPY
  9. ACETAMINOPHEN [Concomitant]
     Indication: ARTHRALGIA
  10. TAMSULOSINE [Concomitant]
     Indication: BENIGN PROSTATIC HYPERPLASIA
  11. CORSODYL [Concomitant]
  12. DICLOFENAC [Concomitant]
     Indication: ARTHRALGIA
  13. LIPITOR [Concomitant]
     Indication: CEREBROVASCULAR ACCIDENT
  14. PERSANTINE [Concomitant]
     Indication: CEREBROVASCULAR ACCIDENT

REACTIONS (1)
  - THROAT CANCER [None]
